FAERS Safety Report 6688977-5 (Version None)
Quarter: 2010Q2

REPORT INFORMATION
  Report Type: 
  Country: None (occurrence: None)
  Receive Date: 20100420
  Receipt Date: 20100407
  Transmission Date: 20101027
  Serious: Yes (Hospitalization)
  Sender: FDA-Public Use
  Company Number: PHHY2010NL00701

PATIENT
  Sex: Male

DRUGS (13)
  1. ZOMETA [Suspect]
     Dosage: 4 MG/5 ML  IN 20 MINUTES (100 ML 0.9% NACL)
     Route: 042
     Dates: start: 20090915
  2. ZOMETA [Suspect]
     Dosage: 4 MG/5 ML  IN 20 MINUTES (100 ML 0.9% NACL)
     Route: 042
     Dates: start: 20091013
  3. ZOMETA [Suspect]
     Dosage: 4 MG/5 ML  IN 20 MINUTES (100 ML 0.9% NACL)
     Route: 042
     Dates: start: 20091110
  4. ZOMETA [Suspect]
     Dosage: 4 MG/5 ML  IN 20 MINUTES (100 ML 0.9% NACL)
     Route: 042
     Dates: start: 20091208
  5. ZOMETA [Suspect]
     Dosage: 4 MG/5 ML  IN 20 MINUTES (100 ML 0.9% NACL)
     Route: 042
     Dates: start: 20100108
  6. ZOMETA [Suspect]
     Dosage: 4 MG/5 ML  IN 20 MINUTES (100 ML 0.9% NACL)
     Route: 042
     Dates: start: 20100210
  7. ZOMETA [Suspect]
     Dosage: 4 MG/5 ML  IN 20 MINUTES (100 ML 0.9% NACL)
     Route: 042
     Dates: start: 20100310
  8. ZOMETA [Suspect]
     Dosage: 4 MG/5 ML  IN 20 MINUTES (100 ML 0.9% NACL)
     Route: 042
     Dates: start: 20100407
  9. ENALAPRIL MALEATE [Concomitant]
     Dosage: 20 MG, (1DD1)
  10. PERSANTIN [Concomitant]
     Dosage: 200 MG, (2DD1)
  11. ACETYLSALICYLIC ACID SRT [Concomitant]
     Dosage: 80 MG, (1DD1)
  12. SIMVASTATIN [Concomitant]
     Dosage: 40 MG, (1DD1)
  13. AMLODIPINE [Concomitant]
     Dosage: 1DD1

REACTIONS (8)
  - BLOOD PRESSURE INCREASED [None]
  - CEREBROVASCULAR ACCIDENT [None]
  - CONFUSIONAL STATE [None]
  - EYELID PTOSIS [None]
  - HEADACHE [None]
  - MUSCULAR WEAKNESS [None]
  - SPEECH DISORDER [None]
  - WEIGHT DECREASED [None]
